FAERS Safety Report 6392148-X (Version None)
Quarter: 2009Q4

REPORT INFORMATION
  Report Type: 
  Country: None (occurrence: None)
  Receive Date: 20091005
  Receipt Date: 20090921
  Transmission Date: 20100525
  Serious: Yes (Life-Threatening, Hospitalization)
  Sender: FDA-Public Use
  Company Number: 2009-03844

PATIENT
  Age: 73 Year
  Sex: Male
  Weight: 87 kg

DRUGS (4)
  1. VELCADE [Suspect]
     Indication: MULTIPLE MYELOMA
     Dosage: 2.6 MG, INTRAVENOUS
     Route: 042
     Dates: start: 20081204, end: 20090319
  2. VELCADE [Suspect]
     Indication: MULTIPLE MYELOMA
     Dosage: 2.6 MG, INTRAVENOUS
     Route: 042
     Dates: start: 20090701, end: 20090814
  3. PREDNISONE TAB [Suspect]
     Dosage: 1600 MG, INTRAVENOUS; 1600 MG, ORAL
     Route: 048
     Dates: start: 20090702, end: 20090720
  4. PREDNISONE TAB [Suspect]
     Dosage: 1600 MG, INTRAVENOUS; 1600 MG, ORAL
     Route: 048
     Dates: start: 20090721, end: 20090814

REACTIONS (4)
  - BLOOD CREATININE INCREASED [None]
  - DIALYSIS [None]
  - GASTROINTESTINAL HAEMORRHAGE [None]
  - HAEMOGLOBIN DECREASED [None]
